FAERS Safety Report 18821700 (Version 2)
Quarter: 2021Q1

REPORT INFORMATION
  Report Type: Report from Study
  Country: CN (occurrence: CN)
  Receive Date: 20210202
  Receipt Date: 20210205
  Transmission Date: 20210419
  Serious: Yes (Life-Threatening, Other)
  Sender: FDA-Public Use
  Company Number: CN-BAYER-2021-048317

PATIENT
  Age: 71 Year
  Sex: Male
  Weight: 69 kg

DRUGS (4)
  1. SORAFENIB (RAF KINASE INHIBITOR) [Suspect]
     Active Substance: SORAFENIB
     Indication: HEPATOCELLULAR CARCINOMA
     Dosage: 400 MG, QD
     Route: 048
     Dates: start: 20200805, end: 20200819
  2. SORAFENIB (RAF KINASE INHIBITOR) [Suspect]
     Active Substance: SORAFENIB
     Indication: HEPATOCELLULAR CARCINOMA
     Dosage: 400 MG, BID
     Route: 048
     Dates: start: 20200707, end: 20200804
  3. APATINIB MESYLATE [Concomitant]
     Active Substance: APATINIB
     Indication: HEPATOCELLULAR CARCINOMA
     Dosage: UNK
     Dates: start: 2020
  4. SORAFENIB (RAF KINASE INHIBITOR) [Suspect]
     Active Substance: SORAFENIB
     Indication: HEPATOCELLULAR CARCINOMA
     Dosage: 400 MG, QOD
     Dates: start: 20200820, end: 20210123

REACTIONS (8)
  - Bronchial obstruction [None]
  - Atelectasis [None]
  - Brain herniation [None]
  - Haemorrhagic stroke [Recovering/Resolving]
  - Blood pressure increased [None]
  - Pneumonitis [None]
  - Metastases to lung [None]
  - Hepatocellular carcinoma [None]

NARRATIVE: CASE EVENT DATE: 20210121
